FAERS Safety Report 11076622 (Version 1)
Quarter: 2015Q2

REPORT INFORMATION
  Report Type: Spontaneous
  Country: US (occurrence: US)
  Receive Date: 20150429
  Receipt Date: 20150429
  Transmission Date: 20150821
  Serious: Yes (Other)
  Sender: FDA-Public Use
  Company Number: US-TEVA-558938USA

PATIENT
  Sex: Female

DRUGS (1)
  1. COPAXONE [Suspect]
     Active Substance: GLATIRAMER ACETATE
     Indication: MULTIPLE SCLEROSIS
     Dosage: UNKNOWN FORM STRENGTH

REACTIONS (4)
  - Vitreous floaters [Recovering/Resolving]
  - Vision blurred [Recovering/Resolving]
  - Photopsia [Recovering/Resolving]
  - Vitreous detachment [Recovering/Resolving]

NARRATIVE: CASE EVENT DATE: 2015
